FAERS Safety Report 19188874 (Version 2)
Quarter: 2022Q1

REPORT INFORMATION
  Report Type: Spontaneous
  Country: US (occurrence: None)
  Receive Date: 20210428
  Receipt Date: 20220120
  Transmission Date: 20220424
  Serious: Yes (Other)
  Sender: FDA-Public Use
  Company Number: US-SERONO NORDIC A.B.-230946K09USA

PATIENT
  Age: 62 Year
  Sex: Female
  Weight: 68 kg

DRUGS (6)
  1. REBIF [Suspect]
     Active Substance: INTERFERON BETA-1A
     Indication: Multiple sclerosis
     Route: 058
     Dates: start: 20030725
  2. LISINOPRIL [Concomitant]
     Active Substance: LISINOPRIL
     Indication: Hypertension
  3. BACLOFEN [Concomitant]
     Active Substance: BACLOFEN
     Indication: Muscle spasms
  4. CELEBREX [Concomitant]
     Active Substance: CELECOXIB
     Indication: Osteoporosis
  5. PROVIGIL [Concomitant]
     Active Substance: MODAFINIL
     Indication: Fatigue
  6. CYMBALTA [Concomitant]
     Active Substance: DULOXETINE HYDROCHLORIDE
     Indication: Depression

REACTIONS (3)
  - Type 2 diabetes mellitus [Recovering/Resolving]
  - Bladder disorder [Recovering/Resolving]
  - Urinary tract infection [Unknown]

NARRATIVE: CASE EVENT DATE: 20081201
